FAERS Safety Report 11061194 (Version 1)
Quarter: 2015Q2

REPORT INFORMATION
  Report Type: Spontaneous
  Country: GB (occurrence: GB)
  Receive Date: 20150424
  Receipt Date: 20150424
  Transmission Date: 20150821
  Serious: Yes (Hospitalization, Disabling)
  Sender: FDA-Public Use
  Company Number: GB-MERCK-1504GBR021169

PATIENT
  Age: 80 Year
  Sex: Female

DRUGS (10)
  1. METHOTREXATE [Concomitant]
     Active Substance: METHOTREXATE
  2. ALENDRONATE SODIUM. [Suspect]
     Active Substance: ALENDRONATE SODIUM
     Indication: OSTEOPOROSIS
     Dosage: 70 MG, QW
     Route: 048
     Dates: end: 20150322
  3. SALAZOPYRIN [Concomitant]
     Active Substance: SULFASALAZINE
  4. FERROUS FUMARATE [Concomitant]
     Active Substance: FERROUS FUMARATE
  5. LANSOPRAZOLE. [Concomitant]
     Active Substance: LANSOPRAZOLE
  6. ALVERINE CITRATE [Concomitant]
     Active Substance: ALVERINE CITRATE
  7. MELOXICAM. [Concomitant]
     Active Substance: MELOXICAM
  8. MAGNESIUM HYDROXIDE. [Concomitant]
     Active Substance: MAGNESIUM HYDROXIDE
  9. FOLIC ACID. [Concomitant]
     Active Substance: FOLIC ACID
  10. SERETIDE [Concomitant]
     Active Substance: FLUTICASONE FUROATE\SALMETEROL XINAFOATE
     Dosage: ACCUHALER

REACTIONS (1)
  - Femur fracture [Recovering/Resolving]
